FAERS Safety Report 4937248-3 (Version None)
Quarter: 2006Q1

REPORT INFORMATION
  Report Type: 
  Country: None (occurrence: None)
  Receive Date: 20060307
  Receipt Date: 20060307
  Transmission Date: 20060701
  Serious: Yes (Hospitalization)
  Sender: FDA-Public Use
  Company Number: None

PATIENT
  Age: 61 Year
  Sex: Male
  Weight: 83.4619 kg

DRUGS (1)
  1. CENTRUM PERFORMANCE [Suspect]
     Indication: VITAMIN SUPPLEMENTATION
     Dosage: ONE TABLET DAILY PO
     Route: 048
     Dates: start: 20050901, end: 20051015

REACTIONS (1)
  - ATRIAL FIBRILLATION [None]
